FAERS Safety Report 8373953-7 (Version None)
Quarter: 2012Q2

REPORT INFORMATION
  Report Type: 
  Country: None (occurrence: None)
  Receive Date: 20120521
  Receipt Date: 20120514
  Transmission Date: 20120825
  Serious: Yes (Hospitalization)
  Sender: FDA-Public Use
  Company Number: US-B.I. PHARMACEUTICALS,INC./RIDGEFIELD-2012-BP-10770BP

PATIENT
  Sex: Female

DRUGS (4)
  1. VITAMIN D [Concomitant]
     Indication: PROPHYLAXIS
     Dosage: 50000 U
     Route: 048
  2. ATENOLOL [Concomitant]
     Indication: HYPERTENSION
     Dosage: 25 MG
     Route: 048
  3. PRADAXA [Suspect]
     Indication: ATRIAL FIBRILLATION
     Dosage: 150 MG
     Route: 048
     Dates: start: 20110801
  4. METOPROLOL [Concomitant]
     Indication: HYPERTENSION
     Dosage: 100 MG
     Route: 048

REACTIONS (4)
  - ERUCTATION [None]
  - JOINT SWELLING [None]
  - CHEST PAIN [None]
  - ABDOMINAL DISTENSION [None]
